FAERS Safety Report 8174058-0 (Version None)
Quarter: 2012Q1

REPORT INFORMATION
  Report Type: 
  Country: None (occurrence: None)
  Receive Date: 20120229
  Receipt Date: 20120222
  Transmission Date: 20120608
  Serious: Yes (Hospitalization)
  Sender: FDA-Public Use
  Company Number: JP-ROCHE-1043304

PATIENT
  Age: 73 Year
  Sex: Male

DRUGS (1)
  1. ROCEPHIN [Suspect]
     Indication: BRAIN ABSCESS
     Route: 042

REACTIONS (2)
  - BILIARY TRACT DISORDER [None]
  - CHOLANGITIS ACUTE [None]
